FAERS Safety Report 6382942-3 (Version None)
Quarter: 2009Q3

REPORT INFORMATION
  Report Type: 
  Country: None (occurrence: None)
  Receive Date: 20090930
  Receipt Date: 20090917
  Transmission Date: 20100115
  Serious: Yes (Other)
  Sender: FDA-Public Use
  Company Number: SE-PFIZER INC-2009267306

PATIENT
  Age: 76 Year

DRUGS (2)
  1. PREDNISOLONE AND PREDNISOLONE STEAGLATE [Suspect]
     Indication: IDIOPATHIC THROMBOCYTOPENIC PURPURA
     Dosage: 2.5 MG, UNK
     Dates: start: 20090727, end: 20090730
  2. DELTISON [Suspect]
     Indication: THROMBOCYTOPENIA
     Dosage: 50 MG, UNK
     Dates: start: 20090611, end: 20090714

REACTIONS (8)
  - DIZZINESS [None]
  - DRUG INEFFECTIVE [None]
  - FATIGUE [None]
  - GENERAL PHYSICAL HEALTH DETERIORATION [None]
  - HYPOKINESIA [None]
  - NAUSEA [None]
  - SUBDURAL HAEMATOMA [None]
  - VISUAL IMPAIRMENT [None]
